FAERS Safety Report 5159307-5 (Version None)
Quarter: 2006Q4

REPORT INFORMATION
  Report Type: 
  Country: None (occurrence: None)
  Receive Date: 20061120
  Receipt Date: 20061108
  Transmission Date: 20070319
  Serious: Yes (Death, Life-Threatening)
  Sender: FDA-Public Use
  Company Number: GXKR2006IT07183

PATIENT
  Age: 44 Year
  Sex: Female

DRUGS (2)
  1. METRONIDAZOLE [Suspect]
     Indication: LUNG INFECTION
  2. PIPERACILLIN [Suspect]
     Indication: LUNG INFECTION

REACTIONS (3)
  - ACINETOBACTER INFECTION [None]
  - SEPSIS [None]
  - TOXIC EPIDERMAL NECROLYSIS [None]
